FAERS Safety Report 20369700 (Version 2)
Quarter: 2022Q1

REPORT INFORMATION
  Report Type: Report from Study
  Country: US (occurrence: US)
  Receive Date: 20220124
  Receipt Date: 20220311
  Transmission Date: 20220424
  Serious: Yes (Death, Hospitalization)
  Sender: FDA-Public Use
  Company Number: US-BAYER-2022A012177

PATIENT
  Age: 74 Year
  Sex: Male
  Weight: 90.703 kg

DRUGS (6)
  1. ADEMPAS [Suspect]
     Active Substance: RIOCIGUAT
     Indication: Pulmonary arterial hypertension
     Dosage: UNK
     Dates: start: 20210406
  2. ADEMPAS [Suspect]
     Active Substance: RIOCIGUAT
     Indication: Pulmonary arterial hypertension
     Dosage: 2.5 MG, TID
     Route: 048
  3. TYVASO [Concomitant]
     Active Substance: TREPROSTINIL
  4. ELIQUIS [Concomitant]
     Active Substance: APIXABAN
  5. ADCIRCA [Concomitant]
     Active Substance: TADALAFIL
     Dosage: 40 MG, QD
  6. LASIX [Concomitant]
     Active Substance: FUROSEMIDE
     Dosage: UNK

REACTIONS (6)
  - Right ventricular failure [Fatal]
  - COVID-19 pneumonia [Fatal]
  - Traumatic fracture [None]
  - Fall [None]
  - Syncope [None]
  - Hypoxia [None]
